FAERS Safety Report 10746529 (Version 2)
Quarter: 2015Q1

REPORT INFORMATION
  Report Type: Report from Study
  Country: US (occurrence: US)
  Receive Date: 20150128
  Receipt Date: 20150313
  Transmission Date: 20150721
  Serious: Yes (Other)
  Sender: FDA-Public Use
  Company Number: US-GILEAD-2015-0133740

PATIENT
  Age: 72 Year
  Sex: Female

DRUGS (1)
  1. RANOLAZINE [Suspect]
     Active Substance: RANOLAZINE
     Indication: ANGINA PECTORIS
     Dosage: 500 MG, UNK
     Route: 048

REACTIONS (11)
  - Product physical issue [Unknown]
  - Vomiting [Unknown]
  - Deafness unilateral [Unknown]
  - Myocardial infarction [Unknown]
  - Gait disturbance [Unknown]
  - Choking [Unknown]
  - Fall [Unknown]
  - Hip fracture [Unknown]
  - Dysphagia [Unknown]
  - Dyspnoea [Unknown]
  - Wrong technique in drug usage process [Unknown]

NARRATIVE: CASE EVENT DATE: 201407
